FAERS Safety Report 9312738 (Version 2)
Quarter: 2013Q3

REPORT INFORMATION
  Report Type: Spontaneous
  Country: BR (occurrence: BR)
  Receive Date: 20130528
  Receipt Date: 20130708
  Transmission Date: 20140515
  Serious: Yes (Other)
  Sender: FDA-Public Use
  Company Number: BR-PFIZER INC-2013159170

PATIENT
  Age: 67 Year
  Sex: Female
  Weight: 53 kg

DRUGS (4)
  1. XALATAN [Suspect]
     Indication: OPEN ANGLE GLAUCOMA
     Dosage: 1 DROP IN BOTH EYES, 1X/DAY
     Route: 047
     Dates: start: 19940104, end: 2006
  2. XALATAN [Suspect]
     Dosage: 1 DROP IN LEFT EYE, 1X/DAY
     Dates: start: 2006, end: 2011
  3. XALATAN [Suspect]
     Dosage: ONE DROP EACH EYE, 1X/DAY
     Route: 047
     Dates: start: 201305
  4. LIPITOR [Concomitant]
     Dosage: UNSPECIFIED DOSAGE, 1X/DAY
     Route: 048
     Dates: start: 20071113

REACTIONS (5)
  - Eye disorder [Unknown]
  - Eye disorder [Unknown]
  - Eye disorder [Unknown]
  - Eye haemorrhage [Unknown]
  - Intraocular pressure increased [Not Recovered/Not Resolved]
